FAERS Safety Report 6555718-1 (Version None)
Quarter: 2010Q1

REPORT INFORMATION
  Report Type: 
  Country: None (occurrence: None)
  Receive Date: 20100128
  Receipt Date: 20100118
  Transmission Date: 20100710
  Serious: Yes (Death, Life-Threatening, Hospitalization, Other)
  Sender: FDA-Public Use
  Company Number: US-ELI_LILLY_AND_COMPANY-US200907003492

PATIENT
  Sex: Female

DRUGS (14)
  1. ZYPREXA [Suspect]
     Indication: BIPOLAR DISORDER
  2. LITHIUM [Concomitant]
  3. SEROQUEL [Concomitant]
  4. PROGRAF [Concomitant]
  5. CYCLOSPORINE [Concomitant]
  6. VALTREX [Concomitant]
  7. DIFLUCAN [Concomitant]
  8. KLONOPIN [Concomitant]
     Dosage: 0.5 MG, 2/D
     Route: 048
  9. AVELOX [Concomitant]
     Dosage: 400 MG, DAILY (1/D)
     Route: 048
  10. DELTASONE [Concomitant]
     Dosage: 80 MG, DAILY (1/D)
  11. INSULIN ASPART [Concomitant]
  12. INSULIN NOVOMIX                    /02607201/ [Concomitant]
  13. KEPPRA [Concomitant]
  14. SPIRIVA [Concomitant]

REACTIONS (8)
  - APLASTIC ANAEMIA [None]
  - ASPIRATION [None]
  - PANCYTOPENIA [None]
  - PNEUMONIA [None]
  - RENAL FAILURE [None]
  - RESPIRATORY FAILURE [None]
  - SEPSIS [None]
  - UNRESPONSIVE TO STIMULI [None]
